FAERS Safety Report 6072728-1 (Version None)
Quarter: 2009Q1

REPORT INFORMATION
  Report Type: 
  Country: None (occurrence: None)
  Receive Date: 20090210
  Receipt Date: 20090202
  Transmission Date: 20090719
  Serious: No
  Sender: FDA-Public Use
  Company Number: US-B.I. PHARMACEUTICALS,INC./RIDGEFIELD-2009-BP-01427BP

PATIENT
  Sex: Female

DRUGS (3)
  1. ATROVENT [Suspect]
     Indication: RHINITIS ALLERGIC
     Route: 045
     Dates: start: 20071001, end: 20090202
  2. ARIMIDEX [Concomitant]
     Indication: BREAST CANCER
     Dosage: 1MG
     Route: 048
     Dates: start: 20090101
  3. SYNTHROID [Concomitant]
     Indication: HYPOTHYROIDISM
     Route: 048
     Dates: start: 20090101

REACTIONS (2)
  - DIPLOPIA [None]
  - VISION BLURRED [None]
